FAERS Safety Report 14147997 (Version 1)
Quarter: 2017Q4

REPORT INFORMATION
  Report Type: Spontaneous
  Country: US (occurrence: US)
  Receive Date: 20171101
  Receipt Date: 20171101
  Transmission Date: 20180321
  Serious: Yes (Other)
  Sender: FDA-Public Use
  Company Number: US-BRISTOL-MYERS SQUIBB COMPANY-BMS-2017-097949

PATIENT

DRUGS (2)
  1. TRIAMCINOLONE ACETONIDE. [Suspect]
     Active Substance: TRIAMCINOLONE ACETONIDE
     Indication: MENIERE^S DISEASE
     Dosage: 40 MG/ML, UNK
     Route: 050
  2. DEXAMETHASONE. [Suspect]
     Active Substance: DEXAMETHASONE
     Indication: MENIERE^S DISEASE
     Dosage: UNK
     Route: 065

REACTIONS (3)
  - Tympanic membrane perforation [Unknown]
  - Product use in unapproved indication [Unknown]
  - Product use issue [Unknown]
